FAERS Safety Report 5504260-5 (Version None)
Quarter: 2007Q4

REPORT INFORMATION
  Report Type: 
  Country: None (occurrence: None)
  Receive Date: 20071029
  Receipt Date: 20071025
  Transmission Date: 20080405
  Serious: Yes (Hospitalization)
  Sender: FDA-Public Use
  Company Number: TCI2007A05728

PATIENT

DRUGS (1)
  1. LANSOPRAZOLE [Suspect]
     Dosage: PER ORAL
     Route: 048

REACTIONS (1)
  - DRUG RASH WITH EOSINOPHILIA AND SYSTEMIC SYMPTOMS [None]
